FAERS Safety Report 11838715 (Version 1)
Quarter: 2015Q4

REPORT INFORMATION
  Report Type: Spontaneous
  Country: US (occurrence: US)
  Receive Date: 20151215
  Receipt Date: 20151215
  Transmission Date: 20160305
  Serious: Yes (Other)
  Sender: FDA-Public Use
  Company Number: US-SA-2014SA175526

PATIENT
  Age: 48 Year
  Sex: Female

DRUGS (1)
  1. FERRLECIT [Suspect]
     Active Substance: SODIUM FERRIC GLUCONATE COMPLEX
     Indication: PERNICIOUS ANAEMIA
     Dosage: FORM:INFUSION?DOSING: 250 MF/250 ML AT RAT EOF 135 ML/HR
     Route: 065
     Dates: end: 20141212

REACTIONS (8)
  - Hypotension [Unknown]
  - Anxiety [Unknown]
  - Swollen tongue [Unknown]
  - Injection site swelling [Unknown]
  - Syncope [Unknown]
  - Swelling face [Unknown]
  - Loss of consciousness [Unknown]
  - Lip swelling [Unknown]

NARRATIVE: CASE EVENT DATE: 20141212
